FAERS Safety Report 11240892 (Version 5)
Quarter: 2015Q4

REPORT INFORMATION
  Report Type: Spontaneous
  Country: US (occurrence: US)
  Receive Date: 20150706
  Receipt Date: 20151027
  Transmission Date: 20160304
  Serious: No
  Sender: FDA-Public Use
  Company Number: US-009507513-1506USA010191

PATIENT
  Age: 29 Year
  Sex: Female
  Weight: 58.96 kg

DRUGS (2)
  1. IMPLANON [Suspect]
     Active Substance: ETONOGESTREL
     Dosage: 68 MG, 1 ROD FOR 3 YEARS
     Route: 059
     Dates: start: 20120608, end: 20150716
  2. IMPLANON [Suspect]
     Active Substance: ETONOGESTREL
     Indication: CONTRACEPTION
     Dosage: UNK
     Route: 059
     Dates: start: 2009, end: 20120608

REACTIONS (5)
  - Device dislocation [Recovered/Resolved]
  - Implant site fibrosis [Not Recovered/Not Resolved]
  - Medical device complication [Recovered/Resolved]
  - Incorrect drug administration duration [Unknown]
  - Device difficult to use [Recovered/Resolved]

NARRATIVE: CASE EVENT DATE: 201412
